FAERS Safety Report 4519663-5 (Version None)
Quarter: 2004Q4

REPORT INFORMATION
  Report Type: 
  Country: None (occurrence: None)
  Receive Date: 20041206
  Receipt Date: 20041004
  Transmission Date: 20050328
  Serious: Yes (Death, Hospitalization, Other)
  Sender: FDA-Public Use
  Company Number: PHFR2004GB03700

PATIENT
  Age: 41 Year
  Sex: Female

DRUGS (10)
  1. BECOTIDE [Concomitant]
     Dosage: 2 PUFFS, QID
     Route: 065
  2. MOVICOL [Concomitant]
     Dosage: 2 SACHETS 250 ML/QD
     Route: 065
  3. LACTULOSE [Concomitant]
     Dosage: 20 ML, QD
     Route: 065
  4. SODIUM AMYTAL [Concomitant]
     Dosage: 120 MG, QD
     Route: 065
  5. CLOZAPINE [Suspect]
     Indication: SCHIZOPHRENIA
     Dosage: UNK, UNK
     Route: 048
     Dates: start: 20021001
  6. ALBUTEROL [Concomitant]
     Indication: ASTHMA
     Dosage: 2 PUFFS/QID
  7. VALPROATE SODIUM [Concomitant]
     Dosage: 200MG BD + 400MG BD
     Route: 065
  8. VALPROATE SODIUM [Concomitant]
     Dosage: 400 MG, BID
     Route: 065
  9. CITALOPRAM [Concomitant]
     Dosage: 40 MG, QD
     Route: 065
  10. OLANZAPINE [Concomitant]
     Dosage: 20MG/DAY
     Route: 065

REACTIONS (5)
  - ABDOMINAL PAIN [None]
  - CARDIAC ARREST [None]
  - FRACTURE [None]
  - MOVEMENT DISORDER [None]
  - MYOCARDITIS [None]
